FAERS Safety Report 5367482-2 (Version None)
Quarter: 2007Q2

REPORT INFORMATION
  Report Type: 
  Country: None (occurrence: None)
  Receive Date: 20070620
  Receipt Date: 20070620
  Transmission Date: 20071010
  Serious: Yes (Other)
  Sender: FDA-Public Use
  Company Number: None

PATIENT
  Sex: Female
  Weight: 124.7392 kg

DRUGS (1)
  1. EFFEXOR [Suspect]
     Dosage: 37.5 MG BID PO
     Route: 048

REACTIONS (1)
  - URINARY RETENTION [None]
